FAERS Safety Report 14385468 (Version 2)
Quarter: 2020Q1

REPORT INFORMATION
  Report Type: Spontaneous
  Country: US (occurrence: US)
  Receive Date: 20180115
  Receipt Date: 20200113
  Transmission Date: 20200409
  Serious: Yes (Other)
  Sender: FDA-Public Use
  Company Number: US-SA-2017SA066678

PATIENT
  Age: 62 Year
  Sex: Female
  Weight: 63.5 kg

DRUGS (12)
  1. HERCEPTIN [Concomitant]
     Active Substance: TRASTUZUMAB
     Dosage: UNK
     Dates: start: 20150818, end: 20150818
  2. PREMARIN [Concomitant]
     Active Substance: ESTROGENS, CONJUGATED
     Dosage: UNK UNK,UNK
     Route: 065
     Dates: start: 19980101
  3. TRAZODONE [Concomitant]
     Active Substance: TRAZODONE HYDROCHLORIDE
     Dosage: UNK UNK,UNK
     Route: 065
     Dates: start: 20130101
  4. PERJETA [Concomitant]
     Active Substance: PERTUZUMAB
     Dosage: UNK
     Dates: start: 20150505, end: 20150505
  5. CARBOPLATIN. [Concomitant]
     Active Substance: CARBOPLATIN
     Indication: BREAST CANCER STAGE III
     Dosage: UNK
     Dates: start: 20150505, end: 20150505
  6. LEVOTHYROXINE. [Concomitant]
     Active Substance: LEVOTHYROXINE
     Dosage: UNK UNK,UNK
     Route: 065
     Dates: start: 20070101
  7. NADOLOL. [Concomitant]
     Active Substance: NADOLOL
     Dosage: UNK UNK,UNK
     Route: 065
     Dates: start: 20120101
  8. PERJETA [Concomitant]
     Active Substance: PERTUZUMAB
     Dosage: UNK
     Dates: start: 20150818, end: 20150818
  9. TAXOTERE [Suspect]
     Active Substance: DOCETAXEL
     Dosage: 140 MG,Q3W
     Route: 042
     Dates: start: 20150818, end: 20150818
  10. HERCEPTIN [Concomitant]
     Active Substance: TRASTUZUMAB
     Indication: BREAST CANCER STAGE III
     Dosage: UNK
     Dates: start: 20150505, end: 20150505
  11. TAXOTERE [Suspect]
     Active Substance: DOCETAXEL
     Indication: BREAST CANCER STAGE III
     Dosage: 140 MG,Q3W
     Route: 042
     Dates: start: 20150505, end: 20150505
  12. CARBOPLATIN. [Concomitant]
     Active Substance: CARBOPLATIN
     Dosage: UNK
     Dates: start: 20150518, end: 20150518

REACTIONS (1)
  - Alopecia [Recovering/Resolving]

NARRATIVE: CASE EVENT DATE: 20150526
